FAERS Safety Report 5647733-7 (Version None)
Quarter: 2008Q1

REPORT INFORMATION
  Report Type: 
  Country: None (occurrence: None)
  Receive Date: 20080228
  Receipt Date: 20080218
  Transmission Date: 20080703
  Serious: Yes (Other)
  Sender: FDA-Public Use
  Company Number: 163-21880-08021183

PATIENT
  Age: 63 Year
  Sex: Female

DRUGS (2)
  1. REVLIMID [Suspect]
     Indication: MULTIPLE MYELOMA
     Dosage: X21 DAYS EVERY 28 DAYS, ORAL, X21 DAYS EVERY 28 DAYS, ORAL
     Route: 048
     Dates: start: 20061025, end: 20070901
  2. REVLIMID [Suspect]
     Indication: MULTIPLE MYELOMA
     Dosage: X21 DAYS EVERY 28 DAYS, ORAL, X21 DAYS EVERY 28 DAYS, ORAL
     Route: 048
     Dates: start: 20071005, end: 20080210

REACTIONS (2)
  - CHROMATURIA [None]
  - HEPATOTOXICITY [None]
